FAERS Safety Report 8924193 (Version 1)
Quarter: 2012Q4

REPORT INFORMATION
  Report Type: Spontaneous
  Country: GB (occurrence: None)
  Receive Date: 20121116
  Receipt Date: 20121116
  Transmission Date: 20130627
  Serious: Yes (Other)
  Sender: FDA-Public Use
  Company Number: GER/UKI/12/0026563

PATIENT
  Age: 65 Year
  Sex: Female

DRUGS (2)
  1. TERBINAFINE [Suspect]
     Indication: TINEA CORPORIS
     Route: 048
  2. MICONAZOLE [Concomitant]

REACTIONS (12)
  - Systemic lupus erythematosus [None]
  - Cutaneous lupus erythematosus [None]
  - Blood alkaline phosphatase increased [None]
  - Stevens-Johnson syndrome [None]
  - Toxic epidermal necrolysis [None]
  - Rash erythematous [None]
  - Blister [None]
  - Tachycardia [None]
  - Condition aggravated [None]
  - Antinuclear antibody positive [None]
  - Antinuclear antibody positive [None]
  - Rheumatoid factor positive [None]
